FAERS Safety Report 4364295-5 (Version None)
Quarter: 2004Q2

REPORT INFORMATION
  Report Type: 
  Country: None (occurrence: None)
  Receive Date: 20040519
  Receipt Date: 20040503
  Transmission Date: 20050107
  Serious: Yes (Death)
  Sender: FDA-Public Use
  Company Number: 2004-BP-03396RO

PATIENT
  Age: 45 Year
  Sex: Female

DRUGS (2)
  1. ALPRAZOLAM [Suspect]
     Dates: end: 20030613
  2. METHADONE HCL [Suspect]
     Dates: end: 20030613

REACTIONS (1)
  - DRUG TOXICITY [None]
